FAERS Safety Report 25838567 (Version 2)
Quarter: 2025Q4

REPORT INFORMATION
  Report Type: Spontaneous
  Country: CA (occurrence: CA)
  Receive Date: 20250923
  Receipt Date: 20251113
  Transmission Date: 20260118
  Serious: Yes (Hospitalization, Other)
  Sender: JOHNSON AND JOHNSON
  Company Number: CA-JNJFOC-20250927497

PATIENT
  Age: 17 Year
  Sex: Male
  Weight: 70 kg

DRUGS (19)
  1. RISPERDAL [Suspect]
     Active Substance: RISPERIDONE
     Indication: Schizophrenia
     Route: 048
  2. RISPERDAL [Suspect]
     Active Substance: RISPERIDONE
  3. RISPERDAL [Suspect]
     Active Substance: RISPERIDONE
  4. RISPERDAL [Suspect]
     Active Substance: RISPERIDONE
  5. RISPERDAL [Suspect]
     Active Substance: RISPERIDONE
  6. RISPERDAL [Suspect]
     Active Substance: RISPERIDONE
  7. CLOZAPINE [Suspect]
     Active Substance: CLOZAPINE
     Indication: Schizophrenia
     Route: 048
  8. CLOZAPINE [Suspect]
     Active Substance: CLOZAPINE
     Route: 048
  9. OLANZAPINE [Suspect]
     Active Substance: OLANZAPINE
     Indication: Schizophrenia
     Route: 048
  10. VRAYLAR [Suspect]
     Active Substance: CARIPRAZINE
     Indication: Schizophrenia
     Route: 048
  11. DEXLANSOPRAZOLE [Concomitant]
     Active Substance: DEXLANSOPRAZOLE
     Indication: Product used for unknown indication
     Dosage: DELAYED?RELEASE
  12. FAMOTIDINE [Concomitant]
     Active Substance: FAMOTIDINE
     Indication: Product used for unknown indication
  13. FAMOTIDINE [Concomitant]
     Active Substance: FAMOTIDINE
  14. FAMOTIDINE [Concomitant]
     Active Substance: FAMOTIDINE
  15. FAMOTIDINE [Concomitant]
     Active Substance: FAMOTIDINE
  16. FAMOTIDINE [Concomitant]
     Active Substance: FAMOTIDINE
  17. FAMOTIDINE [Concomitant]
     Active Substance: FAMOTIDINE
  18. GLYCOPYRROLATE [Concomitant]
     Active Substance: GLYCOPYRROLATE
     Indication: Product used for unknown indication
  19. POLYETHYLENE GLYCOLS [Concomitant]
     Active Substance: POLYETHYLENE GLYCOLS
     Indication: Product used for unknown indication

REACTIONS (9)
  - Neuroleptic malignant syndrome [Unknown]
  - Extrapyramidal disorder [Unknown]
  - Hyperhidrosis [Unknown]
  - Hypotonia [Unknown]
  - Mydriasis [Unknown]
  - Orthostatic hypertension [Unknown]
  - Speech disorder [Unknown]
  - Tachycardia [Unknown]
  - Tremor [Unknown]
